FAERS Safety Report 8586556 (Version 5)
Quarter: 2013Q1

REPORT INFORMATION
  Report Type: Report from Study
  Country: CA (occurrence: CA)
  Receive Date: 20120530
  Receipt Date: 20130122
  Transmission Date: 20140127
  Serious: Yes (Death, Other)
  Sender: FDA-Public Use
  Company Number: CA-ROCHE-1069940

PATIENT
  Age: 28 Year
  Sex: Male

DRUGS (2)
  1. VEMURAFENIB [Suspect]
     Indication: METASTATIC MALIGNANT MELANOMA
     Route: 048
     Dates: start: 20120503
  2. SUBOXONE [Concomitant]

REACTIONS (4)
  - Disease progression [Fatal]
  - Neoplasm progression [Not Recovered/Not Resolved]
  - Sunburn [Not Recovered/Not Resolved]
  - Skin disorder [Unknown]
